FAERS Safety Report 8790531 (Version 1)
Quarter: 2012Q4

REPORT INFORMATION
  Report Type: Spontaneous
  Country: US (occurrence: None)
  Receive Date: 20120911
  Receipt Date: 20120911
  Transmission Date: 20130627
  Serious: No
  Sender: FDA-Public Use
  Company Number: None

PATIENT
  Sex: Female
  Weight: 58.65 kg

DRUGS (1)
  1. MONTELUKAST [Suspect]
     Indication: ASTHMA
     Dosage: 1 day- early 9/20/12
     Route: 048
     Dates: start: 201209

REACTIONS (2)
  - Abdominal pain upper [None]
  - Product substitution issue [None]
